FAERS Safety Report 5669743-6 (Version None)
Quarter: 2008Q1

REPORT INFORMATION
  Report Type: 
  Country: None (occurrence: None)
  Receive Date: 20080317
  Receipt Date: 20080311
  Transmission Date: 20080703
  Serious: Yes (Other)
  Sender: FDA-Public Use
  Company Number: GB-ASTRAZENECA-2008GB00468

PATIENT
  Age: 68 Year
  Sex: Male

DRUGS (4)
  1. LISINOPRIL [Suspect]
     Indication: HYPERTENSION
     Route: 048
     Dates: start: 20071121, end: 20080227
  2. ATENOLOL [Concomitant]
     Indication: HYPERTENSION
     Route: 048
     Dates: end: 20080101
  3. FELODIPINE [Concomitant]
     Indication: HYPERTENSION
     Route: 048
  4. TAMSULOSIN HCL [Concomitant]
     Indication: URINARY TRACT DISORDER
     Route: 048

REACTIONS (3)
  - ANXIETY [None]
  - PETECHIAE [None]
  - RASH PAPULAR [None]
